FAERS Safety Report 6488867-7 (Version None)
Quarter: 2009Q4

REPORT INFORMATION
  Report Type: 
  Country: None (occurrence: None)
  Receive Date: 20091210
  Receipt Date: 20091130
  Transmission Date: 20100525
  Serious: Yes (Life-Threatening)
  Sender: FDA-Public Use
  Company Number: HR-PFIZER INC-2009303664

PATIENT
  Age: 23 Year
  Sex: Female

DRUGS (3)
  1. ZELDOX [Suspect]
     Indication: ACUTE PSYCHOSIS
     Dosage: 80 MG, 2X/DAY
     Route: 048
     Dates: start: 20091009, end: 20091026
  2. ZELDOX [Suspect]
     Dosage: 80 MG, 1X/DAY
     Route: 048
     Dates: start: 20091026, end: 20091030
  3. NORMABEL (DIAZEPAM) [Concomitant]
     Dosage: 5 MG, 3X/DAY
     Dates: start: 20090724

REACTIONS (7)
  - DYSARTHRIA [None]
  - DYSTONIA [None]
  - HYPERHIDROSIS [None]
  - PARKINSONISM [None]
  - STIFF-MAN SYNDROME [None]
  - SUICIDE ATTEMPT [None]
  - TREMOR [None]
